FAERS Safety Report 23176120 (Version 7)
Quarter: 2024Q3

REPORT INFORMATION
  Report Type: Report from Study
  Country: US (occurrence: US)
  Receive Date: 20231113
  Receipt Date: 20240705
  Transmission Date: 20241017
  Serious: Yes (Other)
  Sender: UCB
  Company Number: US-UCBSA-2023003746

PATIENT
  Sex: Male
  Weight: 61.23 kg

DRUGS (16)
  1. FINTEPLA [Suspect]
     Active Substance: FENFLURAMINE
     Indication: Lennox-Gastaut syndrome
     Dosage: 3.1 MILLILITER, 2X/DAY (BID)
     Route: 048
     Dates: start: 20230104
  2. FINTEPLA [Suspect]
     Active Substance: FENFLURAMINE
     Dosage: 3.1 MILLILITER, 2X/DAY (BID)
     Route: 048
     Dates: start: 2023
  3. FINTEPLA [Suspect]
     Active Substance: FENFLURAMINE
     Dosage: 4.6 MILLILITER, 2X/DAY (BID)
     Route: 048
     Dates: start: 2023
  4. FINTEPLA [Suspect]
     Active Substance: FENFLURAMINE
     Dosage: 4.6 MILLILITER, 2X/DAY (BID)
     Route: 048
     Dates: start: 2023
  5. FINTEPLA [Suspect]
     Active Substance: FENFLURAMINE
     Dosage: 4.6 MILLILITER, 2X/DAY (BID)
     Route: 048
     Dates: start: 2023
  6. FINTEPLA [Suspect]
     Active Substance: FENFLURAMINE
     Dosage: 6 MILLILITER, 2X/DAY (BID)
     Route: 048
     Dates: start: 2023
  7. FINTEPLA [Suspect]
     Active Substance: FENFLURAMINE
     Dosage: 6 MILLILITER, 2X/DAY (BID)
     Route: 048
     Dates: start: 2023
  8. FINTEPLA [Suspect]
     Active Substance: FENFLURAMINE
     Dosage: 6 MILLILITER, 2X/DAY (BID)
     Route: 048
     Dates: start: 2023
  9. FINTEPLA [Suspect]
     Active Substance: FENFLURAMINE
     Dosage: 6 MILLILITER, 2X/DAY (BID)
     Route: 048
  10. FINTEPLA [Suspect]
     Active Substance: FENFLURAMINE
     Dosage: 7 MILLILITER, 2X/DAY (BID)
     Route: 048
     Dates: start: 20240131
  11. FINTEPLA [Suspect]
     Active Substance: FENFLURAMINE
     Dosage: 6 MILLILITER, 2X/DAY (BID)
     Route: 048
  12. FINTEPLA [Suspect]
     Active Substance: FENFLURAMINE
     Dosage: 7 MILLILITER, 2X/DAY (BID)
     Dates: start: 20230103
  13. FINTEPLA [Suspect]
     Active Substance: FENFLURAMINE
     Dosage: 7 MILLILITER, 2X/DAY (BID)
  14. EPIDIOLEX [Concomitant]
     Active Substance: CANNABIDIOL
     Indication: Seizure
     Dosage: 5 MILLILITER, 2X/DAY (BID)
     Route: 048
  15. ONFI [Concomitant]
     Active Substance: CLOBAZAM
     Indication: Seizure
     Dosage: 5 MG AM AND 10 MG PM
     Route: 048
  16. BANZEL [Concomitant]
     Active Substance: RUFINAMIDE
     Indication: Seizure
     Dosage: 1200 MILLIGRAM, 2X/DAY (BID)
     Route: 048

REACTIONS (17)
  - Seizure [Not Recovered/Not Resolved]
  - Somnolence [Not Recovered/Not Resolved]
  - Sneezing [Not Recovered/Not Resolved]
  - Hiccups [Not Recovered/Not Resolved]
  - Decreased appetite [Not Recovered/Not Resolved]
  - Diarrhoea [Not Recovered/Not Resolved]
  - Irritability [Not Recovered/Not Resolved]
  - Mood swings [Not Recovered/Not Resolved]
  - Behaviour disorder [Recovering/Resolving]
  - Nasal congestion [Not Recovered/Not Resolved]
  - Respiration abnormal [Not Recovered/Not Resolved]
  - Pyrexia [Unknown]
  - Sleep disorder due to general medical condition, insomnia type [Unknown]
  - Anger [Unknown]
  - Seasonal allergy [Not Recovered/Not Resolved]
  - Overdose [Unknown]
  - Off label use [Unknown]

NARRATIVE: CASE EVENT DATE: 20230101
